FAERS Safety Report 9992095 (Version 1)
Quarter: 2014Q1

REPORT INFORMATION
  Report Type: Spontaneous
  Country: US (occurrence: US)
  Receive Date: 20140310
  Receipt Date: 20140310
  Transmission Date: 20141002
  Serious: No
  Sender: FDA-Public Use
  Company Number: US-ASTELLAS-2013US012785

PATIENT
  Age: 91 Year
  Sex: Male

DRUGS (2)
  1. XTANDI [Suspect]
     Indication: PROSTATE CANCER
     Dosage: 160 MG, UID/QD
     Route: 048
     Dates: start: 20130508, end: 20131202
  2. SPIRONOLACTONE [Concomitant]
     Indication: DIURETIC THERAPY
     Dosage: 10.8 MG, UID/QD
     Route: 048
     Dates: start: 20121203

REACTIONS (1)
  - Prostatic specific antigen increased [Unknown]
